FAERS Safety Report 9168766 (Version 2)
Quarter: 2013Q2

REPORT INFORMATION
  Report Type: Spontaneous
  Country: US (occurrence: US)
  Receive Date: 20130318
  Receipt Date: 20130415
  Transmission Date: 20140414
  Serious: Yes (Hospitalization)
  Sender: FDA-Public Use
  Company Number: US-JNJFOC-20130307550

PATIENT
  Age: 51 Year
  Sex: Male
  Weight: 145.15 kg

DRUGS (4)
  1. STELARA [Suspect]
     Indication: PSORIASIS
     Route: 058
     Dates: start: 20120820
  2. STELARA [Suspect]
     Indication: PSORIASIS
     Dosage: LAST DOSE
     Route: 058
     Dates: start: 20121213
  3. LISINOPRIL [Suspect]
     Indication: PRODUCT USED FOR UNKNOWN INDICATION
     Route: 065
  4. ZOCOR [Suspect]
     Indication: PRODUCT USED FOR UNKNOWN INDICATION
     Route: 065

REACTIONS (2)
  - Non-cardiac chest pain [Recovered/Resolved]
  - Deafness unilateral [Not Recovered/Not Resolved]
